FAERS Safety Report 13250393 (Version 1)
Quarter: 2017Q1

REPORT INFORMATION
  Report Type: Spontaneous
  Country: US (occurrence: US)
  Receive Date: 20170218
  Receipt Date: 20170218
  Transmission Date: 20170428
  Serious: No
  Sender: FDA-Public Use
  Company Number: US-ELI_LILLY_AND_COMPANY-US201702005466

PATIENT
  Sex: Male

DRUGS (3)
  1. HUMALOG KWIKPEN [Suspect]
     Active Substance: INSULIN LISPRO
     Indication: TYPE 1 DIABETES MELLITUS
     Dosage: UNK, PRN FOUR TIMES A DAY
     Route: 065
     Dates: start: 201701
  2. INSULIN [Concomitant]
     Active Substance: INSULIN NOS
  3. HUMALOG KWIKPEN [Suspect]
     Active Substance: INSULIN LISPRO
     Dosage: UNK, PRN FOUR TIMES A DAY
     Route: 065
     Dates: start: 201701

REACTIONS (1)
  - Accidental underdose [Unknown]
